FAERS Safety Report 16386306 (Version 3)
Quarter: 2019Q4

REPORT INFORMATION
  Report Type: Spontaneous
  Country: SE (occurrence: SE)
  Receive Date: 20190603
  Receipt Date: 20191205
  Transmission Date: 20200122
  Serious: Yes (Hospitalization)
  Sender: FDA-Public Use
  Company Number: SE-AMGEN-SWESP2018038922

PATIENT
  Age: 73 Year
  Sex: Female

DRUGS (1)
  1. PROLIA [Suspect]
     Active Substance: DENOSUMAB
     Indication: OSTEOPOROSIS POSTMENOPAUSAL
     Dosage: UNK, Q6MO
     Route: 065
     Dates: start: 201609, end: 20180326

REACTIONS (13)
  - Dyspnoea [Unknown]
  - Visual impairment [Recovering/Resolving]
  - Throat tightness [Recovering/Resolving]
  - Chest discomfort [Unknown]
  - Muscle spasms [Recovering/Resolving]
  - Swelling [Recovered/Resolved]
  - Stomatitis [Unknown]
  - Tooth infection [Recovering/Resolving]
  - Pharyngeal ulceration [Unknown]
  - Arthralgia [Unknown]
  - Erythema [Not Recovered/Not Resolved]
  - Toothache [Recovering/Resolving]
  - Skin ulcer [Unknown]

NARRATIVE: CASE EVENT DATE: 2018
